FAERS Safety Report 23701283 (Version 2)
Quarter: 2024Q3

REPORT INFORMATION
  Report Type: Spontaneous
  Country: US (occurrence: US)
  Receive Date: 20240403
  Receipt Date: 20240709
  Transmission Date: 20241016
  Serious: Yes (Other)
  Sender: NOVARTIS
  Company Number: US-002147023-NVSC2024US069531

PATIENT
  Age: 69 Year
  Sex: Female

DRUGS (10)
  1. ZOMETA [Suspect]
     Active Substance: ZOLEDRONIC ACID
     Indication: Product used for unknown indication
     Dosage: UNK
     Route: 065
  2. MIRTAZAPINE [Suspect]
     Active Substance: MIRTAZAPINE
     Indication: Product used for unknown indication
     Dosage: UNK
     Route: 065
  3. CABOMETYX [Suspect]
     Active Substance: CABOZANTINIB S-MALATE
     Indication: Neuroendocrine tumour
     Dosage: 20 MG, QD
     Route: 048
     Dates: start: 20231130, end: 20240119
  4. CABOMETYX [Suspect]
     Active Substance: CABOZANTINIB S-MALATE
     Indication: Metastases to bone
     Dosage: 20 MG, QD
     Route: 065
     Dates: start: 20240202, end: 20240207
  5. CABOMETYX [Suspect]
     Active Substance: CABOZANTINIB S-MALATE
     Indication: Metastases to liver
     Dosage: 20 MG, QD
     Route: 048
  6. CABOMETYX [Suspect]
     Active Substance: CABOZANTINIB S-MALATE
     Indication: Hepatocellular carcinoma
  7. LINZESS [Suspect]
     Active Substance: LINACLOTIDE
     Indication: Product used for unknown indication
     Dosage: 72 UG
     Route: 065
  8. AMLODIPINE BESYLATE [Concomitant]
     Active Substance: AMLODIPINE BESYLATE
     Indication: Product used for unknown indication
     Dosage: UNK
     Route: 065
  9. LOSARTAN POTASSIUM [Concomitant]
     Active Substance: LOSARTAN POTASSIUM
     Indication: Product used for unknown indication
     Dosage: UNK
     Route: 065
  10. PHENERGAN [Concomitant]
     Active Substance: PROMETHAZINE HYDROCHLORIDE
     Indication: Product used for unknown indication
     Dosage: UNK
     Route: 065

REACTIONS (42)
  - Osteonecrosis of jaw [Unknown]
  - Metastases to meninges [Unknown]
  - Malignant neoplasm progression [Unknown]
  - Urinary retention [Unknown]
  - Haematochezia [Unknown]
  - Spinal cord compression [Unknown]
  - Hydronephrosis [Unknown]
  - Metastases to central nervous system [Unknown]
  - Contusion [Not Recovered/Not Resolved]
  - SARS-CoV-2 test positive [Not Recovered/Not Resolved]
  - Impaired healing [Not Recovered/Not Resolved]
  - Blood bilirubin abnormal [Unknown]
  - Gingival bleeding [Not Recovered/Not Resolved]
  - Haematoma [Unknown]
  - Nausea [Not Recovered/Not Resolved]
  - Arthralgia [Unknown]
  - Weight decreased [Not Recovered/Not Resolved]
  - Decreased appetite [Not Recovered/Not Resolved]
  - Fatigue [Not Recovered/Not Resolved]
  - Constipation [Not Recovered/Not Resolved]
  - Spinal pain [Not Recovered/Not Resolved]
  - Anaemia [Recovering/Resolving]
  - Back pain [Recovered/Resolved]
  - Somnolence [Not Recovered/Not Resolved]
  - Blood chromogranin A increased [Unknown]
  - Haemorrhage [Unknown]
  - Blood alkaline phosphatase increased [Unknown]
  - Diarrhoea [Unknown]
  - Impaired healing [Unknown]
  - Epistaxis [Unknown]
  - Blood urine present [Unknown]
  - Asthenia [Unknown]
  - Stomatitis [Unknown]
  - Dry skin [Unknown]
  - Neuralgia [Unknown]
  - Urinary incontinence [Unknown]
  - Joint swelling [Unknown]
  - Anxiety [Unknown]
  - Joint stiffness [Unknown]
  - Gastrooesophageal reflux disease [Unknown]
  - Vomiting [Recovering/Resolving]
  - Dry mouth [Unknown]

NARRATIVE: CASE EVENT DATE: 20240120
